FAERS Safety Report 5449734-0 (Version None)
Quarter: 2007Q3

REPORT INFORMATION
  Report Type: 
  Country: None (occurrence: None)
  Receive Date: 20070910
  Receipt Date: 20070828
  Transmission Date: 20080115
  Serious: Yes (Other)
  Sender: FDA-Public Use
  Company Number: 2005P1000423

PATIENT
  Age: 53 Year
  Sex: Male
  Weight: 80 kg

DRUGS (7)
  1. PLACEBO (PLACEBO) [Concomitant]
     Indication: ACUTE MYOCARDIAL INFARCTION
     Dosage: 5 IU;BID;IV; 0.25 MG/KG;X1;IV
     Route: 042
     Dates: start: 20050824, end: 20050824
  2. PLACEBO (PLACEBO) [Concomitant]
     Indication: ACUTE MYOCARDIAL INFARCTION
     Dosage: 5 IU;BID;IV; 0.25 MG/KG;X1;IV
     Route: 042
     Dates: start: 20050824, end: 20050824
  3. ABCIXIMAB (ABCIXIMAB) [Suspect]
     Indication: ACUTE MYOCARDIAL INFARCTION
     Dosage: 10 MG;X1;IV; 204 MG;X1;IV
     Route: 042
     Dates: start: 20050824, end: 20050824
  4. ABCIXIMAB (ABCIXIMAB) [Suspect]
     Indication: ACUTE MYOCARDIAL INFARCTION
     Dosage: 10 MG;X1;IV; 204 MG;X1;IV
     Route: 042
     Dates: start: 20050824, end: 20050824
  5. ORGANIC NITRATES [Concomitant]
  6. ASPIRIN [Concomitant]
  7. CLOPIDOGREL [Concomitant]

REACTIONS (2)
  - CORONARY ARTERY STENOSIS [None]
  - LEFT VENTRICULAR DYSFUNCTION [None]
